FAERS Safety Report 6187204-5 (Version None)
Quarter: 2009Q2

REPORT INFORMATION
  Report Type: 
  Country: None (occurrence: None)
  Receive Date: 20090512
  Receipt Date: 20090505
  Transmission Date: 20091009
  Serious: Yes (Hospitalization, Other)
  Sender: FDA-Public Use
  Company Number: PHHY2009GB15276

PATIENT
  Sex: Male

DRUGS (1)
  1. CLOZARIL [Suspect]
     Indication: SCHIZOPHRENIA
     Dosage: 475 MG, QD
     Route: 048
     Dates: start: 20020122

REACTIONS (3)
  - CONFUSIONAL STATE [None]
  - DRUG ABUSE [None]
  - TREATMENT NONCOMPLIANCE [None]
